FAERS Safety Report 9364426 (Version 1)
Quarter: 2013Q2

REPORT INFORMATION
  Report Type: Spontaneous
  Country: US (occurrence: None)
  Receive Date: 20130619
  Receipt Date: 20130619
  Transmission Date: 20140414
  Serious: Yes (Other)
  Sender: FDA-Public Use
  Company Number: 163-20785-13061411

PATIENT
  Sex: 0

DRUGS (1)
  1. THALOMID [Suspect]
     Indication: GLIOBLASTOMA
     Dosage: 200MG AT BEDTIME; INCREASED EVERY 1-2 WKS BY 100MG-200MG AS TOLERATED, PO
     Route: 048
     Dates: start: 19990504, end: 19990820

REACTIONS (33)
  - Liver disorder [None]
  - Visual impairment [None]
  - Lung disorder [None]
  - Cranial nerve injury [None]
  - Renal disorder [None]
  - Encephalopathy [None]
  - Speech disorder [None]
  - Recall phenomenon [None]
  - Arrhythmia [None]
  - Amnesia [None]
  - Ataxia [None]
  - Acoustic stimulation tests abnormal [None]
  - Convulsion [None]
  - Hypersensitivity [None]
  - Bone marrow disorder [None]
  - Oedema [None]
  - Fatigue [None]
  - Skin infection [None]
  - Febrile neutropenia [None]
  - Headache [None]
  - Depression [None]
  - Dizziness [None]
  - Polyneuropathy [None]
  - Tremor [None]
  - Hypertension [None]
  - Thrombosis [None]
  - Endocrine disorder [None]
  - Insomnia [None]
  - Disease progression [None]
  - Nausea [None]
  - Vomiting [None]
  - Vertigo [None]
  - Constipation [None]
